FAERS Safety Report 10881400 (Version 1)
Quarter: 2015Q1

REPORT INFORMATION
  Report Type: Spontaneous
  Country: US (occurrence: None)
  Receive Date: 20150225
  Receipt Date: 20150225
  Transmission Date: 20150721
  Serious: No
  Sender: FDA-Public Use
  Company Number: None

PATIENT
  Age: 36 Year
  Sex: Female

DRUGS (11)
  1. LISINOPRIL. [Concomitant]
     Active Substance: LISINOPRIL
  2. AMPYRA [Suspect]
     Active Substance: DALFAMPRIDINE
     Indication: MULTIPLE SCLEROSIS
     Route: 048
     Dates: start: 201304
  3. TROSPIUM [Concomitant]
     Active Substance: TROSPIUM
  4. ELLURA [Concomitant]
  5. D-MANNOSE [Concomitant]
  6. SPRINTEC-28 [Concomitant]
  7. COPAXONE [Concomitant]
     Active Substance: GLATIRAMER ACETATE
  8. HUMALOG [Concomitant]
     Active Substance: INSULIN LISPRO
  9. LOVASTATIN. [Concomitant]
     Active Substance: LOVASTATIN
  10. NORTRIPTYLINE [Concomitant]
     Active Substance: NORTRIPTYLINE
  11. PROBIOTIC [Concomitant]
     Active Substance: PROBIOTICS NOS

REACTIONS (1)
  - Urinary tract infection [None]

NARRATIVE: CASE EVENT DATE: 20150212
